FAERS Safety Report 7984700-2 (Version None)
Quarter: 2011Q4

REPORT INFORMATION
  Report Type: 
  Country: None (occurrence: None)
  Receive Date: 20111216
  Receipt Date: 20111021
  Transmission Date: 20120403
  Serious: No
  Sender: FDA-Public Use
  Company Number: US-GLAXOSMITHKLINE-A0950088A

PATIENT
  Sex: Male

DRUGS (4)
  1. PEGASYS [Concomitant]
  2. PROMACTA [Suspect]
     Indication: HEPATITIS C
     Route: 048
     Dates: start: 20111007
  3. PROCRIT [Concomitant]
  4. UNKNOWN [Concomitant]

REACTIONS (1)
  - NAUSEA [None]
